FAERS Safety Report 4528573-9 (Version None)
Quarter: 2004Q4

REPORT INFORMATION
  Report Type: 
  Country: None (occurrence: None)
  Receive Date: 20041216
  Receipt Date: 20041206
  Transmission Date: 20050328
  Serious: Yes (Hospitalization, Other)
  Sender: FDA-Public Use
  Company Number: PHEH2004US13005

PATIENT
  Age: 54 Year
  Sex: Female

DRUGS (5)
  1. MIACALCIN [Suspect]
     Indication: OSTEOPOROSIS
     Dosage: 200 IU, QD
     Dates: start: 20000101
  2. FOSAMAX [Concomitant]
     Indication: OSTEOPOROSIS
     Dosage: UNK, QW
  3. GLUCOVANCE [Concomitant]
     Indication: DIABETES MELLITUS
  4. ATACAND [Concomitant]
     Indication: HYPERTENSION
  5. STARLIX [Concomitant]
     Indication: DIABETES MELLITUS

REACTIONS (3)
  - LITHOTRIPSY [None]
  - NEPHROLITHIASIS [None]
  - URINARY TRACT INFECTION [None]
